FAERS Safety Report 17396832 (Version 1)
Quarter: 2020Q1

REPORT INFORMATION
  Report Type: Spontaneous
  Country: US (occurrence: US)
  Receive Date: 20200210
  Receipt Date: 20200210
  Transmission Date: 20200409
  Serious: No
  Sender: FDA-Public Use
  Company Number: US-PFIZER INC-2020057299

PATIENT
  Age: 39 Year
  Sex: Female

DRUGS (7)
  1. LEFLUNOMIDE. [Concomitant]
     Active Substance: LEFLUNOMIDE
     Dosage: 10 MG, UNK
  2. ZINC. [Concomitant]
     Active Substance: ZINC
     Dosage: 10 MG, UNK
  3. OMEGA 3-6-9 [Concomitant]
     Active Substance: FISH OIL
     Dosage: UNK [FISH OIL: 400MG/ TOCOPHEROL: 400MG]
  4. VITAMIN B12 [Concomitant]
     Active Substance: CYANOCOBALAMIN
     Dosage: 2500 UG, UNK
  5. BACLOFEN. [Concomitant]
     Active Substance: BACLOFEN
     Dosage: 10 MG, UNK
  6. DICLOFENAC SODIUM. [Concomitant]
     Active Substance: DICLOFENAC SODIUM
     Dosage: 25 MG, UNK
  7. XELJANZ XR [Suspect]
     Active Substance: TOFACITINIB CITRATE
     Indication: PSORIATIC ARTHROPATHY
     Dosage: 11 MG, DAILY (EVERY DAY)
     Route: 048
     Dates: start: 20190901

REACTIONS (3)
  - Oropharyngeal pain [Unknown]
  - Nasal congestion [Unknown]
  - Rhinorrhoea [Unknown]
